FAERS Safety Report 5901535-2 (Version None)
Quarter: 2008Q3

REPORT INFORMATION
  Report Type: 
  Country: None (occurrence: None)
  Receive Date: 20080926
  Receipt Date: 20080926
  Transmission Date: 20090109
  Serious: Yes (Death)
  Sender: FDA-Public Use
  Company Number: None

PATIENT
  Sex: Female

DRUGS (11)
  1. REVLIMID [Suspect]
     Indication: MULTIPLE MYELOMA
     Dosage: 15MG DAILY 21D/28D ORAL
     Route: 048
  2. PROCRIT [Concomitant]
  3. MORPHINE [Concomitant]
  4. HYDROMORPHONE HCL [Concomitant]
  5. TRILISATE [Concomitant]
  6. DEXAMETHASONE [Concomitant]
  7. NEURONTIN [Concomitant]
  8. LACTULOSE [Concomitant]
  9. LOVASTATIN [Concomitant]
  10. LEVOTHROID [Concomitant]
  11. OMEPRAZOLE [Concomitant]

REACTIONS (1)
  - DEATH [None]
